FAERS Safety Report 10503931 (Version 1)
Quarter: 2014Q4

REPORT INFORMATION
  Report Type: Spontaneous
  Country: US (occurrence: None)
  Receive Date: 20141007
  Receipt Date: 20141007
  Transmission Date: 20150528
  Serious: Yes (Hospitalization)
  Sender: FDA-Public Use
  Company Number: None

PATIENT
  Age: 37 Year
  Sex: Female
  Weight: 113 kg

DRUGS (9)
  1. BISACODYL. [Concomitant]
     Active Substance: BISACODYL
  2. RIVAROXABAN [Suspect]
     Active Substance: RIVAROXABAN
     Indication: PULMONARY EMBOLISM
     Route: 048
     Dates: start: 20140912, end: 20140917
  3. APAP [Concomitant]
     Active Substance: ACETAMINOPHEN
  4. OXYCODONE [Concomitant]
     Active Substance: OXYCODONE
  5. NORCO [Concomitant]
     Active Substance: ACETAMINOPHEN\HYDROCODONE BITARTRATE
  6. ENOXAPARIN [Concomitant]
     Active Substance: ENOXAPARIN
  7. DOCUSATE [Concomitant]
     Active Substance: DOCUSATE
  8. MORPHINE [Concomitant]
     Active Substance: MORPHINE
  9. ZOFRAN [Concomitant]
     Active Substance: ONDANSETRON HYDROCHLORIDE

REACTIONS (5)
  - Sensory loss [None]
  - Asthenia [None]
  - Intervertebral disc degeneration [None]
  - Pain in extremity [None]
  - Diplegia [None]
